FAERS Safety Report 4325806-9 (Version None)
Quarter: 2004Q1

REPORT INFORMATION
  Report Type: 
  Country: None (occurrence: None)
  Receive Date: 20040329
  Receipt Date: 20040206
  Transmission Date: 20041129
  Serious: Yes (Hospitalization)
  Sender: FDA-Public Use
  Company Number: US-ROCHE-358503

PATIENT
  Age: 55 Year
  Sex: Female
  Weight: 48.1 kg

DRUGS (5)
  1. PEGASYS [Suspect]
     Indication: HEPATITIS C
     Route: 058
     Dates: start: 20030516, end: 20040218
  2. COPEGUS [Suspect]
     Indication: HEPATITIS C
     Route: 048
     Dates: start: 20030516, end: 20040204
  3. COPEGUS [Suspect]
     Route: 048
     Dates: start: 20040206, end: 20040209
  4. COPEGUS [Suspect]
     Route: 048
     Dates: start: 20040209, end: 20040218
  5. NEUPOGEN [Concomitant]
     Route: 058
     Dates: start: 20030715

REACTIONS (6)
  - EPISTAXIS [None]
  - HAEMOGLOBIN DECREASED [None]
  - PAROXYSMAL NOCTURNAL HAEMOGLOBINURIA [None]
  - PLEURAL FIBROSIS [None]
  - WEIGHT DECREASED [None]
  - WHITE BLOOD CELL COUNT DECREASED [None]
